FAERS Safety Report 10361110 (Version 2)
Quarter: 2015Q1

REPORT INFORMATION
  Report Type: Spontaneous
  Country: AU (occurrence: None)
  Receive Date: 20140731
  Receipt Date: 20150106
  Transmission Date: 20150720
  Serious: Yes (Life-Threatening, Hospitalization, Other)
  Sender: FDA-Public Use
  Company Number: 2014MPI00875

PATIENT
  Age: 69 Year
  Sex: Female
  Weight: 60.9 kg

DRUGS (21)
  1. VINBLASTINE [Suspect]
     Active Substance: VINBLASTINE
     Indication: HODGKIN^S DISEASE
     Dosage: Q14D
     Route: 042
     Dates: start: 20140619, end: 20140703
  2. DESVENLAFAXINE SUCCINATE [Suspect]
     Active Substance: DESVENLAFAXINE SUCCINATE
     Indication: PRODUCT USED FOR UNKNOWN INDICATION
  3. PRISTIQ EXTENDED RELEASE [Concomitant]
     Active Substance: DESVENLAFAXINE SUCCINATE
  4. PANADEINE CO [Concomitant]
     Active Substance: ACETAMINOPHEN\CODEINE PHOSPHATE
  5. APREPITANT. [Concomitant]
     Active Substance: APREPITANT
  6. MIRALAX [Concomitant]
     Active Substance: POLYETHYLENE GLYCOL 3350
  7. BRENTUXIMAB VEDOTIN [Suspect]
     Active Substance: BRENTUXIMAB VEDOTIN
     Indication: HODGKIN^S DISEASE
     Dosage: Q14D
     Route: 042
     Dates: start: 20140619, end: 20140703
  8. DOXORUBICIN [Suspect]
     Active Substance: DOXORUBICIN
     Indication: HODGKIN^S DISEASE
     Dosage: Q14D
     Route: 042
     Dates: start: 20140619, end: 20140703
  9. FEXOFENADINE [Concomitant]
     Active Substance: FEXOFENADINE\FEXOFENADINE HYDROCHLORIDE
  10. MONOPLUS [Concomitant]
     Active Substance: FOSINOPRIL SODIUM\HYDROCHLOROTHIAZIDE
  11. LAMIVUDINE. [Concomitant]
     Active Substance: LAMIVUDINE
  12. MOVICOL [Concomitant]
     Active Substance: POLYETHYLENE GLYCOL 3350\POTASSIUM CHLORIDE\SODIUM BICARBONATE\SODIUM CHLORIDE
  13. HYDROCHLOROTHIAZIDE. [Suspect]
     Active Substance: HYDROCHLOROTHIAZIDE
     Indication: PRODUCT USED FOR UNKNOWN INDICATION
  14. ALLOPURINOL. [Concomitant]
     Active Substance: ALLOPURINOL
  15. FAMVIR [Concomitant]
     Active Substance: FAMCICLOVIR
  16. SALINE [Concomitant]
     Active Substance: SODIUM CHLORIDE
  17. ONDANSETRON. [Concomitant]
     Active Substance: ONDANSETRON
  18. DEXAMETHASONE. [Concomitant]
     Active Substance: DEXAMETHASONE
  19. DACARBAZINE. [Suspect]
     Active Substance: DACARBAZINE
     Indication: HODGKIN^S DISEASE
     Dosage: Q14D
     Route: 042
     Dates: start: 20140619, end: 20140619
  20. METOCLOPRAMIDE. [Concomitant]
     Active Substance: METOCLOPRAMIDE
  21. ACICLOVIR [Concomitant]
     Active Substance: ACYCLOVIR

REACTIONS (17)
  - Hyponatraemia [None]
  - Blood potassium decreased [None]
  - Vomiting [None]
  - Blood chloride decreased [None]
  - Blood magnesium decreased [None]
  - Decreased appetite [None]
  - White blood cell count decreased [None]
  - Blood lactate dehydrogenase increased [None]
  - Neutrophil count decreased [None]
  - Nausea [None]
  - Lymphocyte count decreased [None]
  - Fatigue [None]
  - Lethargy [None]
  - Blood bicarbonate increased [None]
  - Blood glucose increased [None]
  - Alanine aminotransferase decreased [None]
  - Fall [None]

NARRATIVE: CASE EVENT DATE: 20140715
